FAERS Safety Report 8289652-6 (Version None)
Quarter: 2012Q2

REPORT INFORMATION
  Report Type: 
  Country: None (occurrence: None)
  Receive Date: 20120417
  Receipt Date: 20120410
  Transmission Date: 20120825
  Serious: Yes (Hospitalization)
  Sender: FDA-Public Use
  Company Number: JP-ASTRAZENECA-2012SE24409

PATIENT
  Age: 72 Year
  Sex: Female

DRUGS (8)
  1. LYRICA [Concomitant]
     Indication: PRODUCT USED FOR UNKNOWN INDICATION
     Route: 048
     Dates: start: 20110819, end: 20110819
  2. CANDESARTAN CILEXETIL [Suspect]
     Indication: HYPERTENSION
     Route: 048
     Dates: end: 20110822
  3. EZETIMIBE [Concomitant]
     Indication: HYPERCHOLESTEROLAEMIA
     Route: 048
  4. LATANOPROST [Concomitant]
     Indication: GLAUCOMA
     Route: 047
  5. FIXICAL VITAMINE D3 [Concomitant]
     Indication: CALCIUM DEFICIENCY
     Dosage: DAILY
     Route: 048
  6. PROTELOS [Concomitant]
     Indication: OSTEOPOROSIS
     Route: 048
     Dates: end: 20110822
  7. ACETAMINOPHEN [Concomitant]
     Indication: PAIN
     Route: 048
  8. ALPHAGAN [Concomitant]
     Indication: GLAUCOMA
     Route: 047

REACTIONS (3)
  - DISORIENTATION [None]
  - CONFUSIONAL STATE [None]
  - HYPONATRAEMIA [None]
